FAERS Safety Report 5405478-2 (Version None)
Quarter: 2007Q3

REPORT INFORMATION
  Report Type: 
  Country: None (occurrence: None)
  Receive Date: 20070803
  Receipt Date: 20070724
  Transmission Date: 20080115
  Serious: Yes (Death, Hospitalization)
  Sender: FDA-Public Use
  Company Number: US-AMGEN-US222616

PATIENT
  Sex: Male
  Weight: 67.2 kg

DRUGS (15)
  1. PANITUMUMAB [Suspect]
     Indication: PANCREATIC CARCINOMA
     Route: 042
     Dates: start: 20070413, end: 20070413
  2. GEMZAR [Suspect]
     Route: 065
  3. VYTORIN [Concomitant]
     Route: 048
     Dates: end: 20070430
  4. COLCHICINE [Concomitant]
     Route: 048
  5. FLOMAX [Concomitant]
     Route: 048
  6. METFORMIN HCL [Concomitant]
     Route: 048
  7. MEGACE [Concomitant]
     Route: 048
  8. DIOVAN HCT [Concomitant]
     Route: 048
  9. OXYCODONE HCL [Concomitant]
     Route: 065
  10. OXYCONTIN [Concomitant]
     Route: 048
  11. SENOKOT [Concomitant]
     Route: 065
  12. STOOL SOFTENER [Concomitant]
     Route: 065
  13. PRAVACHOL [Concomitant]
     Route: 048
     Dates: start: 20070430, end: 20070501
  14. ZETIA [Concomitant]
     Route: 048
     Dates: start: 20070430, end: 20070501
  15. ATACAND HCT [Concomitant]
     Route: 048

REACTIONS (5)
  - HYPERGLYCAEMIA [None]
  - RENAL FAILURE ACUTE [None]
  - RESPIRATORY DISTRESS [None]
  - SEPSIS [None]
  - SUPRAVENTRICULAR TACHYCARDIA [None]
